FAERS Safety Report 4415528-8 (Version None)
Quarter: 2004Q2

REPORT INFORMATION
  Report Type: 
  Country: None (occurrence: None)
  Receive Date: 20040630
  Receipt Date: 20031112
  Transmission Date: 20050107
  Serious: Yes (Other)
  Sender: FDA-Public Use
  Company Number: 2003118201

PATIENT
  Age: 37 Year
  Sex: Female
  Weight: 63.5036 kg

DRUGS (11)
  1. ZOLOFT [Suspect]
     Indication: MAJOR DEPRESSION
     Dosage: 200 MG (DAILY), ORAL
     Route: 048
     Dates: start: 20020114
  2. LORAZEPAM [Concomitant]
  3. ZOLPIDEM TARTRATE [Concomitant]
  4. AXOTAL [Concomitant]
  5. MONTELUKAST (MONTELUKAST) [Concomitant]
  6. ATORVASTATIN (ATORVASTATIN) [Concomitant]
  7. EZETIMIBE (EZETIMIBE) [Concomitant]
  8. SERETIDE MITE (FLUTICASONE PROPIONATE, SALMETEROL XINAFOATE) [Concomitant]
  9. SALBUTAMOL (SALBUTAMOL) [Concomitant]
  10. LEVOSALBUTAMOL (LEVOSALBUTAMOL) [Concomitant]
  11. SINEMET [Concomitant]

REACTIONS (1)
  - VISUAL FIELD DEFECT [None]
